FAERS Safety Report 11578037 (Version 1)
Quarter: 2015Q3

REPORT INFORMATION
  Report Type: Report from Study
  Country: TH (occurrence: TH)
  Receive Date: 20150930
  Receipt Date: 20150930
  Transmission Date: 20151125
  Serious: Yes (Death)
  Sender: FDA-Public Use
  Company Number: PHHY2011TH84826

PATIENT
  Sex: Male

DRUGS (1)
  1. GLIVEC [Suspect]
     Active Substance: IMATINIB MESYLATE
     Indication: CHRONIC MYELOID LEUKAEMIA
     Dosage: 400 MG, UNK
     Route: 065
     Dates: start: 20110726

REACTIONS (7)
  - Insomnia [Unknown]
  - Feeding disorder [Unknown]
  - Vomiting [Unknown]
  - Decreased appetite [Unknown]
  - Death [Fatal]
  - Eye disorder [Unknown]
  - Nausea [Unknown]
